FAERS Safety Report 7133319-4 (Version None)
Quarter: 2010Q4

REPORT INFORMATION
  Report Type: 
  Country: None (occurrence: None)
  Receive Date: 20101202
  Receipt Date: 20101019
  Transmission Date: 20110411
  Serious: Yes (Death, Hospitalization, Other)
  Sender: FDA-Public Use
  Company Number: US-BAXTER-2010BH001841

PATIENT
  Age: 72 Year
  Sex: Female

DRUGS (95)
  1. HEPARIN SODIUM INJECTION [Suspect]
     Indication: CENTRAL VENOUS CATHETERISATION
     Route: 042
     Dates: start: 20080107, end: 20080107
  2. HEPARIN SODIUM INJECTION [Suspect]
     Indication: INTRAVENOUS CATHETER MANAGEMENT
     Route: 042
     Dates: start: 20080107, end: 20080107
  3. HEPARIN SODIUM INJECTION [Suspect]
     Indication: JUGULAR VEIN THROMBOSIS
     Route: 042
     Dates: start: 20080107, end: 20080107
  4. HEPARIN SODIUM INJECTION [Suspect]
     Indication: VENOGRAM
     Route: 042
     Dates: start: 20080107, end: 20080107
  5. HEPARIN SODIUM INJECTION [Suspect]
     Route: 042
     Dates: start: 20080103, end: 20080103
  6. HEPARIN SODIUM INJECTION [Suspect]
     Route: 042
     Dates: start: 20080103, end: 20080103
  7. HEPARIN SODIUM INJECTION [Suspect]
     Route: 042
     Dates: start: 20080103, end: 20080103
  8. HEPARIN SODIUM INJECTION [Suspect]
     Route: 042
     Dates: start: 20080103, end: 20080103
  9. HEPARIN SODIUM INJECTION [Suspect]
     Route: 042
     Dates: start: 20070103, end: 20080103
  10. HEPARIN SODIUM INJECTION [Suspect]
     Route: 042
     Dates: start: 20070103, end: 20080103
  11. HEPARIN SODIUM INJECTION [Suspect]
     Route: 042
     Dates: start: 20070103, end: 20080103
  12. HEPARIN SODIUM INJECTION [Suspect]
     Route: 042
     Dates: start: 20070103, end: 20080103
  13. HEPARIN SODIUM INJECTION [Suspect]
     Route: 042
     Dates: start: 20070801, end: 20070801
  14. HEPARIN SODIUM INJECTION [Suspect]
     Route: 042
     Dates: start: 20070801, end: 20070801
  15. HEPARIN SODIUM INJECTION [Suspect]
     Route: 042
     Dates: start: 20070801, end: 20070801
  16. HEPARIN SODIUM INJECTION [Suspect]
     Route: 042
     Dates: start: 20070801, end: 20070801
  17. HEPARIN SODIUM INJECTION [Suspect]
     Route: 042
     Dates: start: 20080104, end: 20080107
  18. HEPARIN SODIUM INJECTION [Suspect]
     Route: 042
     Dates: start: 20080104, end: 20080107
  19. HEPARIN SODIUM INJECTION [Suspect]
     Route: 042
     Dates: start: 20080104, end: 20080107
  20. HEPARIN SODIUM INJECTION [Suspect]
     Route: 042
     Dates: start: 20080104, end: 20080107
  21. HEPARIN SODIUM INJECTION [Suspect]
     Route: 042
     Dates: start: 20071231, end: 20071231
  22. HEPARIN SODIUM INJECTION [Suspect]
     Route: 042
     Dates: start: 20071231, end: 20071231
  23. HEPARIN SODIUM INJECTION [Suspect]
     Route: 042
     Dates: start: 20071231, end: 20071231
  24. HEPARIN SODIUM INJECTION [Suspect]
     Route: 042
     Dates: start: 20071231, end: 20071231
  25. HEPARIN SODIUM INJECTION [Suspect]
     Route: 042
     Dates: start: 20070911, end: 20070913
  26. HEPARIN SODIUM INJECTION [Suspect]
     Route: 042
     Dates: start: 20070911, end: 20070913
  27. HEPARIN SODIUM INJECTION [Suspect]
     Route: 042
     Dates: start: 20070911, end: 20070913
  28. HEPARIN SODIUM INJECTION [Suspect]
     Route: 042
     Dates: start: 20070911, end: 20070913
  29. HEPARIN SODIUM INJECTION [Suspect]
     Route: 042
     Dates: start: 20070911, end: 20070913
  30. HEPARIN SODIUM INJECTION [Suspect]
     Route: 042
     Dates: start: 20070911, end: 20070913
  31. HEPARIN SODIUM INJECTION [Suspect]
     Route: 042
     Dates: start: 20070911, end: 20070913
  32. HEPARIN SODIUM INJECTION [Suspect]
     Route: 042
     Dates: start: 20070911, end: 20070913
  33. HEPARIN SODIUM INJECTION [Suspect]
     Route: 042
     Dates: start: 20071010, end: 20071012
  34. HEPARIN SODIUM INJECTION [Suspect]
     Route: 042
     Dates: start: 20071010, end: 20071012
  35. HEPARIN SODIUM INJECTION [Suspect]
     Route: 042
     Dates: start: 20071010, end: 20071012
  36. HEPARIN SODIUM INJECTION [Suspect]
     Route: 042
     Dates: start: 20071010, end: 20071012
  37. HEPARIN SODIUM INJECTION [Suspect]
     Route: 042
     Dates: start: 20071010, end: 20071012
  38. HEPARIN SODIUM INJECTION [Suspect]
     Route: 042
     Dates: start: 20071010, end: 20071012
  39. HEPARIN SODIUM INJECTION [Suspect]
     Route: 042
     Dates: start: 20071010, end: 20071012
  40. HEPARIN SODIUM INJECTION [Suspect]
     Route: 042
     Dates: start: 20071010, end: 20071012
  41. HEPARIN SODIUM INJECTION [Suspect]
     Route: 040
     Dates: start: 20080104, end: 20080104
  42. HEPARIN SODIUM INJECTION [Suspect]
     Route: 040
     Dates: start: 20080104, end: 20080104
  43. HEPARIN SODIUM INJECTION [Suspect]
     Route: 040
     Dates: start: 20080104, end: 20080104
  44. HEPARIN SODIUM INJECTION [Suspect]
     Route: 040
     Dates: start: 20080104, end: 20080104
  45. HEPARIN SODIUM INJECTION [Suspect]
     Route: 042
     Dates: start: 20071031, end: 20071102
  46. HEPARIN SODIUM INJECTION [Suspect]
     Route: 042
     Dates: start: 20071031, end: 20071102
  47. HEPARIN SODIUM INJECTION [Suspect]
     Route: 042
     Dates: start: 20071031, end: 20071102
  48. HEPARIN SODIUM INJECTION [Suspect]
     Route: 042
     Dates: start: 20071031, end: 20071102
  49. HEPARIN SODIUM INJECTION [Suspect]
     Route: 042
     Dates: start: 20071031, end: 20071102
  50. HEPARIN SODIUM INJECTION [Suspect]
     Route: 042
     Dates: start: 20071031, end: 20071102
  51. HEPARIN SODIUM INJECTION [Suspect]
     Route: 042
     Dates: start: 20071031, end: 20071102
  52. HEPARIN SODIUM INJECTION [Suspect]
     Route: 042
     Dates: start: 20071031, end: 20071102
  53. HEPARIN SODIUM INJECTION [Suspect]
     Route: 042
     Dates: start: 20080107, end: 20080107
  54. HEPARIN SODIUM INJECTION [Suspect]
     Route: 042
     Dates: start: 20080107, end: 20080107
  55. HEPARIN SODIUM INJECTION [Suspect]
     Route: 042
     Dates: start: 20080107, end: 20080107
  56. HEPARIN SODIUM INJECTION [Suspect]
     Route: 042
     Dates: start: 20080107, end: 20080107
  57. HEPARIN SODIUM INJECTION [Suspect]
     Route: 042
     Dates: start: 20071231, end: 20080101
  58. HEPARIN SODIUM INJECTION [Suspect]
     Route: 042
     Dates: start: 20071231, end: 20080101
  59. HEPARIN SODIUM INJECTION [Suspect]
     Route: 042
     Dates: start: 20071231, end: 20080101
  60. HEPARIN SODIUM INJECTION [Suspect]
     Route: 042
     Dates: start: 20071231, end: 20080101
  61. HEPARIN SODIUM 5,000 UNITS IN DEXTROSE 5% [Suspect]
     Indication: JUGULAR VEIN THROMBOSIS
     Dosage: DOSE UNIT:UNITS PER KILOGRAM
     Route: 042
     Dates: start: 20080104, end: 20080108
  62. LOVENOX [Suspect]
     Indication: THROMBOSIS PROPHYLAXIS
     Route: 058
     Dates: start: 20071225, end: 20080105
  63. LOVENOX [Suspect]
     Route: 058
     Dates: start: 20071225, end: 20080105
  64. ZOFRAN [Concomitant]
     Indication: PRODUCT USED FOR UNKNOWN INDICATION
     Route: 065
  65. ANASTROZOLE [Concomitant]
     Indication: PRODUCT USED FOR UNKNOWN INDICATION
     Route: 065
  66. ADVAIR [Concomitant]
     Indication: PRODUCT USED FOR UNKNOWN INDICATION
     Route: 055
  67. MIACALCIN [Concomitant]
     Indication: PRODUCT USED FOR UNKNOWN INDICATION
     Route: 065
  68. RANITIDINE [Concomitant]
     Indication: PRODUCT USED FOR UNKNOWN INDICATION
     Route: 065
  69. FLONASE [Concomitant]
     Indication: PRODUCT USED FOR UNKNOWN INDICATION
     Route: 045
  70. NEUPOGEN [Concomitant]
     Indication: PRODUCT USED FOR UNKNOWN INDICATION
     Route: 065
  71. CIPROFLOXACIN [Concomitant]
     Indication: PRODUCT USED FOR UNKNOWN INDICATION
     Route: 065
  72. LEXAPRO [Concomitant]
     Indication: PRODUCT USED FOR UNKNOWN INDICATION
     Route: 065
  73. ALBUTEROL SULFATE [Concomitant]
     Indication: PRODUCT USED FOR UNKNOWN INDICATION
     Route: 065
  74. NORMAL SALINE [Concomitant]
     Indication: PRODUCT USED FOR UNKNOWN INDICATION
     Route: 065
  75. ACETAMINOPHEN [Concomitant]
     Indication: PRODUCT USED FOR UNKNOWN INDICATION
     Route: 065
  76. MAGNESIUM HYDROXIDE [Concomitant]
     Indication: PRODUCT USED FOR UNKNOWN INDICATION
     Route: 065
  77. DOCUSATE SODIUM [Concomitant]
     Indication: PRODUCT USED FOR UNKNOWN INDICATION
     Route: 065
  78. ZOLPIDEM TARTRATE [Concomitant]
     Indication: PRODUCT USED FOR UNKNOWN INDICATION
     Route: 065
  79. PROCHLORPERAZINE MALEATE [Concomitant]
     Indication: PRODUCT USED FOR UNKNOWN INDICATION
     Route: 065
  80. ALPRAZOLAM [Concomitant]
     Indication: PRODUCT USED FOR UNKNOWN INDICATION
     Route: 065
  81. ESOMEPRAZOLE MAGNESIUM [Concomitant]
     Indication: PRODUCT USED FOR UNKNOWN INDICATION
     Route: 065
  82. CALCITONIN [Concomitant]
     Indication: PRODUCT USED FOR UNKNOWN INDICATION
     Route: 065
  83. FLUTICASONE PROPIONATE [Concomitant]
     Indication: PRODUCT USED FOR UNKNOWN INDICATION
     Route: 065
  84. CITALOPRAM HYDROBROMIDE [Concomitant]
     Indication: PRODUCT USED FOR UNKNOWN INDICATION
     Route: 065
  85. PREDNISONE [Concomitant]
     Indication: PRODUCT USED FOR UNKNOWN INDICATION
     Route: 065
  86. FENTANYL [Concomitant]
     Indication: PRODUCT USED FOR UNKNOWN INDICATION
     Route: 065
  87. FLUCONAZOLE [Concomitant]
     Indication: PRODUCT USED FOR UNKNOWN INDICATION
     Route: 065
  88. ENOXAPARIN SODIUM [Concomitant]
     Indication: PRODUCT USED FOR UNKNOWN INDICATION
     Route: 065
  89. MAGNESIUM [Concomitant]
     Indication: PRODUCT USED FOR UNKNOWN INDICATION
     Route: 065
  90. METOCLOPRAMIDE HYDROCHLORIDE [Concomitant]
     Indication: PRODUCT USED FOR UNKNOWN INDICATION
     Route: 065
  91. GUAIFENESIN [Concomitant]
     Indication: PRODUCT USED FOR UNKNOWN INDICATION
     Route: 065
  92. DARVOCET-N 100 [Concomitant]
     Indication: PRODUCT USED FOR UNKNOWN INDICATION
     Route: 065
  93. MORPHINE SULFATE [Concomitant]
     Indication: PRODUCT USED FOR UNKNOWN INDICATION
     Route: 065
  94. CEFUROXIME AXETIL [Concomitant]
     Indication: PRODUCT USED FOR UNKNOWN INDICATION
     Route: 065
  95. OTHER CHEMOTHERAPEUTICS [Concomitant]
     Indication: NEOPLASM MALIGNANT
     Route: 065

REACTIONS (36)
  - ABDOMINAL DISTENSION [None]
  - ABDOMINAL PAIN [None]
  - ANAEMIA [None]
  - ASPIRATION [None]
  - ASTHENIA [None]
  - CONTUSION [None]
  - DECREASED APPETITE [None]
  - DEHYDRATION [None]
  - DIZZINESS [None]
  - FLUID OVERLOAD [None]
  - HILAR LYMPHADENOPATHY [None]
  - HYPERKALAEMIA [None]
  - HYPOGLYCAEMIA [None]
  - HYPOMAGNESAEMIA [None]
  - HYPONATRAEMIA [None]
  - HYPOTENSION [None]
  - INSOMNIA [None]
  - JUGULAR VEIN THROMBOSIS [None]
  - LEUKOPENIA [None]
  - LOCAL SWELLING [None]
  - MENTAL STATUS CHANGES [None]
  - METASTASES TO LIVER [None]
  - MUSCULOSKELETAL CHEST PAIN [None]
  - NEUTROPENIA [None]
  - NON-SMALL CELL LUNG CANCER METASTATIC [None]
  - PERIPHERAL VASCULAR DISORDER [None]
  - PLATELET COUNT DECREASED [None]
  - PLEURAL EFFUSION [None]
  - PNEUMONIA [None]
  - PSEUDOMONAL SEPSIS [None]
  - RENAL ATROPHY [None]
  - RENAL FAILURE ACUTE [None]
  - RESPIRATORY DISTRESS [None]
  - TREMOR [None]
  - UNRESPONSIVE TO STIMULI [None]
  - VOMITING [None]
